FAERS Safety Report 8969802 (Version 3)
Quarter: 2013Q1

REPORT INFORMATION
  Report Type: Spontaneous
  Country: FR (occurrence: FR)
  Receive Date: 20121217
  Receipt Date: 20130125
  Transmission Date: 20140127
  Serious: Yes (Hospitalization)
  Sender: FDA-Public Use
  Company Number: FR-ROCHE-1152943

PATIENT
  Age: 43 Year
  Sex: Female

DRUGS (3)
  1. VEMURAFENIB [Suspect]
     Indication: METASTATIC MALIGNANT MELANOMA
     Route: 048
     Dates: start: 20120918
  2. MONURIL [Suspect]
     Indication: URINARY TRACT INFECTION
     Route: 048
     Dates: start: 20120919, end: 20120919
  3. CONTRACEPTIVE PILL [Concomitant]

REACTIONS (2)
  - Rash maculo-papular [Recovered/Resolved]
  - Hepatocellular injury [Recovered/Resolved]
